FAERS Safety Report 16803784 (Version 1)
Quarter: 2019Q3

REPORT INFORMATION
  Report Type: Spontaneous
  Country: US (occurrence: US)
  Receive Date: 20190913
  Receipt Date: 20190913
  Transmission Date: 20191005
  Serious: Yes (Hospitalization, Other)
  Sender: FDA-Public Use
  Company Number: US-ROCHE-2375275

PATIENT
  Sex: Female

DRUGS (14)
  1. CELEBREX [Concomitant]
     Active Substance: CELECOXIB
  2. ACTEMRA [Suspect]
     Active Substance: TOCILIZUMAB
     Indication: TEMPORAL ARTERITIS
     Dosage: ONGOING: YES
     Route: 058
     Dates: start: 20171214
  3. TYLENOL [Concomitant]
     Active Substance: ACETAMINOPHEN
  4. HYDROCHLOROTHIAZIDE. [Concomitant]
     Active Substance: HYDROCHLOROTHIAZIDE
  5. CALCIUM CITRATE [Concomitant]
     Active Substance: CALCIUM CITRATE
  6. PEPCID [Concomitant]
     Active Substance: FAMOTIDINE
  7. PREDNISONE. [Concomitant]
     Active Substance: PREDNISONE
  8. MELATONIN [Concomitant]
     Active Substance: MELATONIN
  9. METOPROLOL. [Concomitant]
     Active Substance: METOPROLOL
  10. MSM [METHYLSULFONYLMETHANE] [Concomitant]
  11. ASPIRIN [ACETYLSALICYLIC ACID] [Concomitant]
     Active Substance: ASPIRIN
  12. ACYCLOVIR [ACICLOVIR] [Concomitant]
     Active Substance: ACYCLOVIR
  13. GABAPENTIN. [Concomitant]
     Active Substance: GABAPENTIN
  14. GLUCOSAMINE [Concomitant]
     Active Substance: GLUCOSAMINE

REACTIONS (2)
  - Diverticular perforation [Unknown]
  - Infection [Unknown]
